FAERS Safety Report 19137061 (Version 1)
Quarter: 2021Q2

REPORT INFORMATION
  Report Type: Spontaneous
  Country: US (occurrence: US)
  Receive Date: 20210414
  Receipt Date: 20210414
  Transmission Date: 20210717
  Serious: No
  Sender: FDA-Public Use
  Company Number: US-FERRINGPH-2020FE05069

PATIENT
  Age: 45 Year
  Sex: Female
  Weight: 89 kg

DRUGS (3)
  1. LUPRON [Suspect]
     Active Substance: LEUPROLIDE ACETATE
     Indication: PRODUCT USED FOR UNKNOWN INDICATION
     Dosage: UNK
     Route: 065
     Dates: start: 20200728
  2. FIRMAGON [Suspect]
     Active Substance: DEGARELIX ACETATE
     Indication: PORPHYRIA
     Dosage: LOADING DOSE
     Route: 065
     Dates: start: 20200728
  3. GIVLAARI [Suspect]
     Active Substance: GIVOSIRAN SODIUM
     Indication: PORPHYRIA
     Dosage: UNK
     Route: 065
     Dates: start: 20200728

REACTIONS (11)
  - Anxiety [Not Recovered/Not Resolved]
  - Injection site swelling [Not Recovered/Not Resolved]
  - Product administered at inappropriate site [Unknown]
  - Product use in unapproved indication [Unknown]
  - Injection site erythema [Not Recovered/Not Resolved]
  - Fatigue [Unknown]
  - Wrong patient received product [Unknown]
  - Wrong product administered [Unknown]
  - Injection site pain [Not Recovered/Not Resolved]
  - Headache [Unknown]
  - Off label use [Unknown]

NARRATIVE: CASE EVENT DATE: 202007
